FAERS Safety Report 8516943-3 (Version None)
Quarter: 2012Q3

REPORT INFORMATION
  Report Type: 
  Country: None (occurrence: None)
  Receive Date: 20120718
  Receipt Date: 20120711
  Transmission Date: 20120928
  Serious: Yes (Death, Life-Threatening, Hospitalization)
  Sender: FDA-Public Use
  Company Number: DE-ELI_LILLY_AND_COMPANY-DE201204003670

PATIENT
  Sex: Male
  Weight: 80 kg

DRUGS (4)
  1. METHOTREXATE SODIUM [Concomitant]
     Dosage: UNK, WEEKLY (1/W)
     Route: 030
  2. FOLCUR [Concomitant]
     Dosage: 5 MG, WEEKLY (1/W)
  3. FORTEO [Suspect]
     Indication: OSTEOPOROSIS
     Dosage: 20 UG, QD
     Route: 058
     Dates: start: 20110929, end: 20120411
  4. PREDNISOLONE [Concomitant]
     Dosage: 5 MG, QD

REACTIONS (5)
  - SEPSIS [None]
  - FALL [None]
  - MULTI-ORGAN FAILURE [None]
  - ARTHRITIS BACTERIAL [None]
  - MALAISE [None]
